FAERS Safety Report 7382468-4 (Version None)
Quarter: 2011Q1

REPORT INFORMATION
  Report Type: 
  Country: None (occurrence: None)
  Receive Date: 20110329
  Receipt Date: 20110316
  Transmission Date: 20110831
  Serious: Yes (Hospitalization)
  Sender: FDA-Public Use
  Company Number: GB-BAYER-2011-026619

PATIENT
  Age: 50 Year
  Sex: Male

DRUGS (1)
  1. RENNIE DUAL ACTION TABLETS - RMS, UK [Suspect]
     Indication: DYSPEPSIA
     Dosage: EXCESSIVE AMOUNTS
     Route: 048

REACTIONS (1)
  - MILK-ALKALI SYNDROME [None]
